FAERS Safety Report 5066415-6 (Version None)
Quarter: 2006Q3

REPORT INFORMATION
  Report Type: 
  Country: None (occurrence: None)
  Receive Date: 20060728
  Receipt Date: 20060728
  Transmission Date: 20061208
  Serious: Yes (Hospitalization)
  Sender: FDA-Public Use
  Company Number: None

PATIENT
  Sex: Female
  Weight: 45.8133 kg

DRUGS (9)
  1. LYRICA [Suspect]
     Indication: POST HERPETIC NEURALGIA
     Dosage: PO
     Route: 048
     Dates: start: 20060602, end: 20060603
  2. BENICAR [Concomitant]
  3. TOPROL-XL [Concomitant]
  4. DIGOXIN [Concomitant]
  5. DILTIAZEM [Concomitant]
  6. LASIX [Concomitant]
  7. SYBNTHROID [Concomitant]
  8. WARFARIN [Concomitant]
  9. FOLIC ACID [Concomitant]

REACTIONS (3)
  - DIZZINESS [None]
  - FALL [None]
  - SKIN LACERATION [None]
